FAERS Safety Report 11695067 (Version 1)
Quarter: 2015Q4

REPORT INFORMATION
  Report Type: Spontaneous
  Country: CN (occurrence: CN)
  Receive Date: 20151103
  Receipt Date: 20151103
  Transmission Date: 20160304
  Serious: Yes (Hospitalization, Other)
  Sender: FDA-Public Use
  Company Number: CN-JNJFOC-20151021712

PATIENT
  Age: 60 Year
  Sex: Male

DRUGS (1)
  1. RISPERIDONE. [Suspect]
     Active Substance: RISPERIDONE
     Indication: MENTAL DISORDER
     Route: 048

REACTIONS (7)
  - Toxicity to various agents [Recovering/Resolving]
  - White blood cell count increased [Unknown]
  - Lung infection [Unknown]
  - Coma [Recovered/Resolved]
  - Renal failure [Unknown]
  - Product use issue [Unknown]
  - Off label use [Unknown]
